FAERS Safety Report 16464460 (Version 1)
Quarter: 2019Q2

REPORT INFORMATION
  Report Type: Spontaneous
  Country: JP (occurrence: JP)
  Receive Date: 20190621
  Receipt Date: 20190621
  Transmission Date: 20190711
  Serious: Yes (Other)
  Sender: FDA-Public Use
  Company Number: JP-ASTRAZENECA-2018SF22940

PATIENT
  Age: 68 Year
  Sex: Male
  Weight: 77 kg

DRUGS (3)
  1. LANSOPRAZOLE. [Suspect]
     Active Substance: LANSOPRAZOLE
     Route: 048
     Dates: start: 20180823
  2. IMFINZI [Suspect]
     Active Substance: DURVALUMAB
     Indication: NON-SMALL CELL LUNG CANCER
     Route: 041
     Dates: start: 20180725, end: 20180906
  3. URSO [Suspect]
     Active Substance: URSODIOL
     Indication: ASPARTATE AMINOTRANSFERASE INCREASED
     Route: 048
     Dates: start: 20180823

REACTIONS (5)
  - Aspartate aminotransferase increased [Unknown]
  - Blood creatine phosphokinase increased [Unknown]
  - Alanine aminotransferase increased [Unknown]
  - Rhabdomyolysis [Unknown]
  - Protein urine [Recovering/Resolving]

NARRATIVE: CASE EVENT DATE: 20180823
